FAERS Safety Report 7112985-3 (Version None)
Quarter: 2010Q4

REPORT INFORMATION
  Report Type: 
  Country: None (occurrence: None)
  Receive Date: 20101119
  Receipt Date: 20101111
  Transmission Date: 20110411
  Serious: Yes (Hospitalization)
  Sender: FDA-Public Use
  Company Number: JP-ALEXION-A201001459

PATIENT
  Age: 23 Year
  Sex: Female

DRUGS (2)
  1. SOLIRIS [Suspect]
     Indication: PAROXYSMAL NOCTURNAL HAEMOGLOBINURIA
     Dosage: 600 MG, QW
     Route: 042
     Dates: start: 20100930
  2. SOLIRIS [Suspect]
     Dosage: 900 MG, UNK
     Route: 042

REACTIONS (3)
  - HEPATIC FUNCTION ABNORMAL [None]
  - PYREXIA [None]
  - VIRAL INFECTION [None]
